FAERS Safety Report 4590638-3 (Version None)
Quarter: 2005Q1

REPORT INFORMATION
  Report Type: 
  Country: None (occurrence: None)
  Receive Date: 20050224
  Receipt Date: 20050214
  Transmission Date: 20050727
  Serious: Yes (Hospitalization)
  Sender: FDA-Public Use
  Company Number: US-JNJFOC-20040900431

PATIENT
  Sex: Female
  Weight: 95.71 kg

DRUGS (26)
  1. REMICADE [Suspect]
     Route: 042
  2. REMICADE [Suspect]
     Route: 042
  3. REMICADE [Suspect]
     Route: 042
  4. REMICADE [Suspect]
     Indication: RHEUMATOID ARTHRITIS
     Route: 042
  5. METHOTREXATE [Concomitant]
  6. METHOTREXATE [Concomitant]
     Dosage: 7 TABLETS WEEKLY
  7. FOLIC ACID [Concomitant]
     Dosage: 7 TABLETS WEEKLY
  8. PLAQUENIL [Concomitant]
  9. FLEXERIL [Concomitant]
     Dosage: AT BEDTIME
  10. AMITRIPTYLINE [Concomitant]
  11. LORTAB [Concomitant]
  12. LORTAB [Concomitant]
     Dosage: 750 MG, 4 TO 5 TABLETS DAILY
  13. CLONIDINE [Concomitant]
  14. MONOPRIL [Concomitant]
  15. FUROSEMIDE [Concomitant]
  16. THEO-DUR [Concomitant]
  17. SINGULAIR [Concomitant]
  18. NEURONTIN [Concomitant]
  19. EFFEXOR [Concomitant]
  20. ADVAIR DISKUS 100/50 [Concomitant]
  21. ADVAIR DISKUS 100/50 [Concomitant]
  22. ALBUTEROL [Concomitant]
  23. EXCEDRIN (MIGRAINE) [Concomitant]
  24. EXCEDRIN (MIGRAINE) [Concomitant]
  25. EXCEDRIN (MIGRAINE) [Concomitant]
  26. EXCEDRIN (MIGRAINE) [Concomitant]

REACTIONS (6)
  - ASTHMA [None]
  - BRONCHITIS [None]
  - CARDIAC FAILURE CONGESTIVE [None]
  - PNEUMONIA [None]
  - PNEUMONIA VIRAL [None]
  - TREATMENT NONCOMPLIANCE [None]
